FAERS Safety Report 15004871 (Version 1)
Quarter: 2018Q2

REPORT INFORMATION
  Report Type: Other
  Country: IT (occurrence: IT)
  Receive Date: 20180613
  Receipt Date: 20180613
  Transmission Date: 20180711
  Serious: Yes (Hospitalization, Other)
  Sender: FDA-Public Use
  Company Number: IT-BRISTOL-MYERS SQUIBB COMPANY-BMS-2018-051473

PATIENT
  Age: 90 Year
  Sex: Male

DRUGS (7)
  1. LYRICA [Concomitant]
     Active Substance: PREGABALIN
     Indication: PRODUCT USED FOR UNKNOWN INDICATION
     Route: 065
  2. TACHIPIRINA [Concomitant]
     Active Substance: ACETAMINOPHEN
     Indication: PRODUCT USED FOR UNKNOWN INDICATION
     Route: 065
  3. DUROGESIC [Concomitant]
     Active Substance: FENTANYL
     Indication: PRODUCT USED FOR UNKNOWN INDICATION
     Route: 065
  4. COUMADIN [Suspect]
     Active Substance: WARFARIN SODIUM
     Indication: THROMBOSIS PROPHYLAXIS
     Route: 048
     Dates: start: 20170101, end: 20170403
  5. LANSOPRAZOLE. [Concomitant]
     Active Substance: LANSOPRAZOLE
     Indication: PRODUCT USED FOR UNKNOWN INDICATION
     Route: 065
  6. CARDICOR [Concomitant]
     Active Substance: BISOPROLOL
     Indication: PRODUCT USED FOR UNKNOWN INDICATION
     Route: 065
  7. TOTALIP [Concomitant]
     Active Substance: ATORVASTATIN
     Indication: PRODUCT USED FOR UNKNOWN INDICATION
     Route: 065

REACTIONS (3)
  - Fall [Recovering/Resolving]
  - Subdural haematoma [Recovering/Resolving]
  - Bradyphrenia [Recovering/Resolving]

NARRATIVE: CASE EVENT DATE: 20170403
